FAERS Safety Report 17282989 (Version 1)
Quarter: 2020Q1

REPORT INFORMATION
  Report Type: Spontaneous
  Country: US (occurrence: US)
  Receive Date: 20200117
  Receipt Date: 20200117
  Transmission Date: 20200409
  Serious: Yes (Hospitalization)
  Sender: FDA-Public Use
  Company Number: None

PATIENT
  Age: 57 Year
  Sex: Female

DRUGS (3)
  1. DALFAMPRADINE ER TABLET [Suspect]
     Active Substance: DALFAMPRIDINE
     Indication: MULTIPLE SCLEROSIS
     Route: 048
     Dates: start: 20190405
  2. AUBAGIO [Concomitant]
     Active Substance: TERIFLUNOMIDE
  3. ACTHAR [Concomitant]
     Active Substance: CORTICOTROPIN

REACTIONS (4)
  - Face injury [None]
  - Fall [None]
  - Nasal injury [None]
  - Dehydration [None]

NARRATIVE: CASE EVENT DATE: 20200106
